FAERS Safety Report 14371540 (Version 1)
Quarter: 2018Q1

REPORT INFORMATION
  Report Type: Spontaneous
  Country: US (occurrence: US)
  Receive Date: 20180109
  Receipt Date: 20180109
  Transmission Date: 20180509
  Serious: Yes (Other)
  Sender: FDA-Public Use
  Company Number: None

PATIENT
  Age: 53 Year
  Sex: Male
  Weight: 105.75 kg

DRUGS (7)
  1. CENTRUM SILVER MEN^S 50+ DAILY MULTIVITAMIN [Concomitant]
  2. AMLODIPINE [Concomitant]
     Active Substance: AMLODIPINE BESYLATE
  3. VIACTIVE CHEWS [Concomitant]
  4. TESTOSTERONE CYPIONATE. [Concomitant]
     Active Substance: TESTOSTERONE CYPIONATE
  5. (POLYETHYLENE GLYCOL 3350) POWDER, FOR SOLUTION [Suspect]
     Active Substance: POLYETHYLENE GLYCOL 3350
     Indication: INFREQUENT BOWEL MOVEMENTS
     Dates: start: 20180108, end: 20180108
  6. LIPITOR [Concomitant]
     Active Substance: ATORVASTATIN CALCIUM
  7. VITAMIN D3 [Concomitant]
     Active Substance: CHOLECALCIFEROL

REACTIONS (3)
  - Pruritus generalised [None]
  - Oral pruritus [None]
  - Wheezing [None]

NARRATIVE: CASE EVENT DATE: 20180108
